FAERS Safety Report 4359704-1 (Version None)
Quarter: 2004Q2

REPORT INFORMATION
  Report Type: 
  Country: None (occurrence: None)
  Receive Date: 20040518
  Receipt Date: 20030514
  Transmission Date: 20050107
  Serious: Yes (Other)
  Sender: FDA-Public Use
  Company Number: PHEH2003US04056

PATIENT
  Age: 58 Year
  Sex: Male

DRUGS (6)
  1. AREDIA [Suspect]
     Indication: MULTIPLE MYELOMA
     Dosage: 90 MG, EVERY 2-3 WEEKS
     Route: 042
     Dates: start: 19980813, end: 20021212
  2. THALIDOMIDE [Concomitant]
  3. DEXAMETHASONE [Concomitant]
  4. ALKERAN [Concomitant]
  5. PREDNISONE [Concomitant]
  6. EPOGEN [Concomitant]

REACTIONS (4)
  - FISTULA [None]
  - IMPAIRED HEALING [None]
  - OSTEONECROSIS [None]
  - SEQUESTRECTOMY [None]
